FAERS Safety Report 4975628-0 (Version None)
Quarter: 2006Q2

REPORT INFORMATION
  Report Type: 
  Country: None (occurrence: None)
  Receive Date: 20060411
  Receipt Date: 20060403
  Transmission Date: 20061013
  Serious: Yes (Disabling)
  Sender: FDA-Public Use
  Company Number: 200610072BWH

PATIENT
  Age: 54 Year
  Sex: Female
  Weight: 63.5036 kg

DRUGS (2)
  1. AVELOX [Suspect]
     Indication: SINUSITIS
     Dosage: 400 MG, QD, ORAL
     Route: 048
     Dates: start: 20050923
  2. DIAZEPAM [Concomitant]

REACTIONS (11)
  - ANGIOPATHY [None]
  - DEAFNESS UNILATERAL [None]
  - DISTURBANCE IN ATTENTION [None]
  - DRUG INEFFECTIVE [None]
  - EAR INFECTION [None]
  - EAR PAIN [None]
  - IMPAIRED WORK ABILITY [None]
  - INSOMNIA [None]
  - MALAISE [None]
  - NAUSEA [None]
  - TINNITUS [None]
